FAERS Safety Report 7000012-8 (Version None)
Quarter: 2010Q3

REPORT INFORMATION
  Report Type: 
  Country: None (occurrence: None)
  Receive Date: 20100920
  Receipt Date: 20100723
  Transmission Date: 20110219
  Serious: No
  Sender: FDA-Public Use
  Company Number: US-ASTRAZENECA-2009UW17566

PATIENT
  Age: 30 Year
  Sex: Female
  Weight: 97.5 kg

DRUGS (22)
  1. SEROQUEL [Suspect]
     Indication: SCHIZOPHRENIA
     Route: 048
     Dates: start: 19980101
  2. SEROQUEL [Suspect]
     Indication: BIPOLAR DISORDER
     Route: 048
     Dates: start: 19980101
  3. SEROQUEL [Suspect]
     Indication: INSOMNIA
     Route: 048
     Dates: start: 19980101
  4. SEROQUEL [Suspect]
     Route: 048
     Dates: start: 20051115
  5. SEROQUEL [Suspect]
     Route: 048
     Dates: start: 20051115
  6. SEROQUEL [Suspect]
     Route: 048
     Dates: start: 20051115
  7. RISPERDAL [Concomitant]
     Indication: SCHIZOPHRENIA
     Dates: start: 19970101
  8. RISPERDAL [Concomitant]
     Indication: BIPOLAR DISORDER
     Dates: start: 19970101
  9. RISPERDAL [Concomitant]
     Indication: INSOMNIA
     Dates: start: 19970101
  10. RISPERDAL [Concomitant]
     Route: 048
     Dates: start: 20051115
  11. RISPERDAL [Concomitant]
     Route: 048
     Dates: start: 20051115
  12. RISPERDAL [Concomitant]
     Route: 048
     Dates: start: 20051115
  13. ZYPREXA [Concomitant]
     Indication: SCHIZOPHRENIA
     Dates: start: 19980101, end: 19980101
  14. ZYPREXA [Concomitant]
     Indication: BIPOLAR DISORDER
     Dates: start: 19980101, end: 19980101
  15. ZYPREXA [Concomitant]
     Indication: INSOMNIA
     Dates: start: 19980101, end: 19980101
  16. EFFEXOR [Concomitant]
  17. EFFEXOR [Concomitant]
     Dosage: 37.5 MG PLUS 75 MG QAM
     Route: 048
     Dates: start: 20051115
  18. XANAX [Concomitant]
  19. LEVOTHYROXINE [Concomitant]
     Dates: start: 20051115
  20. CLONAZEPAM [Concomitant]
     Route: 048
     Dates: start: 20051115
  21. DEPAKOTE ER [Concomitant]
     Route: 048
     Dates: start: 20051115
  22. AVINZA [Concomitant]
     Route: 048
     Dates: start: 20051115

REACTIONS (7)
  - BLOOD CHOLESTEROL INCREASED [None]
  - BLOOD TRIGLYCERIDES INCREASED [None]
  - HYPERLIPIDAEMIA [None]
  - OBESITY [None]
  - TYPE 1 DIABETES MELLITUS [None]
  - TYPE 2 DIABETES MELLITUS [None]
  - WEIGHT INCREASED [None]
